FAERS Safety Report 7953821-2 (Version None)
Quarter: 2011Q4

REPORT INFORMATION
  Report Type: 
  Country: None (occurrence: None)
  Receive Date: 20111202
  Receipt Date: 20110902
  Transmission Date: 20120403
  Serious: No
  Sender: FDA-Public Use
  Company Number: PR-PFIZER INC-2005088766

PATIENT
  Age: 52 Year
  Sex: Female

DRUGS (2)
  1. LEVOFLOXACIN [Suspect]
     Route: 065
  2. LIPITOR [Suspect]
     Route: 065

REACTIONS (3)
  - NEPHROLITHIASIS [None]
  - MYALGIA [None]
  - HEADACHE [None]
